FAERS Safety Report 7473031-5 (Version None)
Quarter: 2011Q2

REPORT INFORMATION
  Report Type: 
  Country: None (occurrence: None)
  Receive Date: 20110511
  Receipt Date: 20110506
  Transmission Date: 20111010
  Serious: Yes (Other)
  Sender: FDA-Public Use
  Company Number: GB-ROCHE-637339

PATIENT
  Sex: Female
  Weight: 95.8 kg

DRUGS (7)
  1. OMEPRAZOLE [Concomitant]
     Dates: start: 20081210
  2. BEVACIZUMAB [Suspect]
     Indication: BREAST CANCER
     Dosage: DOSAGE FORM: INFUSION. DRUG PERMANENTLY DISCONTINUED.LAST DOSE PRIOR TO SAE:19 MAY 2009
     Route: 042
     Dates: start: 20081210, end: 20090608
  3. CYCLOPHOSPHAMIDE [Suspect]
     Indication: BREAST CANCER
     Dosage: DOSAGE FORM: INFUSION. DOSAGE FORM : INFUSION, DATE OF LAST DOSE PRIOR TO ONSET OF SAE: 24 MAR 2009
     Route: 042
     Dates: start: 20081210
  4. SEPTRA [Concomitant]
     Dates: start: 20081210, end: 20081217
  5. DOXORUBICIN HCL [Suspect]
     Indication: BREAST CANCER
     Dosage: DOSAGE FORM : INFUSION, DATE OF LAST DOSE PRIOR TO ONSET OF SAE: 24 MAR 2009
     Route: 042
     Dates: start: 20081210
  6. DOCETAXEL [Suspect]
     Indication: BREAST CANCER
     Dosage: DOSAGE FORM: INFUSION LAST DOSE PRIOR TO SAE WAS ON 24 MARCH 2009
     Route: 042
     Dates: start: 20081210
  7. DOMPERIDONE [Concomitant]
     Dates: start: 20081210, end: 20081219

REACTIONS (3)
  - PERICARDIAL EFFUSION [None]
  - CARDIOMYOPATHY [None]
  - LEFT VENTRICULAR FAILURE [None]
